FAERS Safety Report 20559741 (Version 1)
Quarter: 2022Q1

REPORT INFORMATION
  Report Type: Spontaneous
  Country: US (occurrence: US)
  Receive Date: 20220307
  Receipt Date: 20220307
  Transmission Date: 20220423
  Serious: Yes (Other)
  Sender: FDA-Public Use
  Company Number: US-NOVARTISPH-NVSC2022US051261

PATIENT
  Age: 39 Year
  Sex: Female
  Weight: 58.05 kg

DRUGS (4)
  1. TEGRETOL [Suspect]
     Active Substance: CARBAMAZEPINE
     Indication: Epilepsy
     Dosage: UNK
     Route: 065
     Dates: start: 20220128
  2. DEPAKOTE [Suspect]
     Active Substance: DIVALPROEX SODIUM
     Indication: Seizure
     Dosage: 1500 MG, QD
     Route: 048
     Dates: start: 2018, end: 202201
  3. DEPAKOTE [Suspect]
     Active Substance: DIVALPROEX SODIUM
     Indication: Epilepsy
     Dosage: 500 MG, QD
     Route: 048
     Dates: start: 202201, end: 20220202
  4. VENLAFAXINE [Concomitant]
     Active Substance: VENLAFAXINE HYDROCHLORIDE
     Indication: Affective disorder
     Dosage: UNK
     Route: 065

REACTIONS (22)
  - Cervical spinal stenosis [Not Recovered/Not Resolved]
  - Partial seizures [Recovering/Resolving]
  - Osteoarthritis [Not Recovered/Not Resolved]
  - Migraine [Recovering/Resolving]
  - Arthritis [Not Recovered/Not Resolved]
  - Vertigo [Recovering/Resolving]
  - Gastric disorder [Not Recovered/Not Resolved]
  - Tremor [Recovering/Resolving]
  - Dyspepsia [Not Recovered/Not Resolved]
  - Anxiety [Recovering/Resolving]
  - Dysmenorrhoea [Not Recovered/Not Resolved]
  - Vitamin D decreased [Not Recovered/Not Resolved]
  - Blood sodium decreased [Not Recovered/Not Resolved]
  - Dehydration [Not Recovered/Not Resolved]
  - Fluid intake reduced [Not Recovered/Not Resolved]
  - Arthropathy [Unknown]
  - Weight increased [Unknown]
  - Osteoporosis [Not Recovered/Not Resolved]
  - Alopecia [Recovering/Resolving]
  - Feeling abnormal [Not Recovered/Not Resolved]
  - Unevaluable event [Recovering/Resolving]
  - Therapeutic product effect incomplete [Unknown]

NARRATIVE: CASE EVENT DATE: 20220101
